FAERS Safety Report 13891665 (Version 1)
Quarter: 2017Q3

REPORT INFORMATION
  Report Type: Spontaneous
  Country: CN (occurrence: CN)
  Receive Date: 20170822
  Receipt Date: 20170822
  Transmission Date: 20171127
  Serious: Yes (Other)
  Sender: FDA-Public Use
  Company Number: CN-009507513-1708CHN008397

PATIENT
  Age: 35 Year
  Sex: Female

DRUGS (1)
  1. MARVELON [Suspect]
     Active Substance: DESOGESTREL\ETHINYL ESTRADIOL
     Route: 048

REACTIONS (9)
  - Dyspnoea at rest [Unknown]
  - Hypoaesthesia [Unknown]
  - Dysstasia [Unknown]
  - Diarrhoea [Unknown]
  - Breast pain [Unknown]
  - Tachypnoea [Unknown]
  - Pain in extremity [Unknown]
  - Back pain [Unknown]
  - Dysgeusia [Unknown]
